FAERS Safety Report 7631370-9 (Version None)
Quarter: 2011Q3

REPORT INFORMATION
  Report Type: 
  Country: None (occurrence: None)
  Receive Date: 20110725
  Receipt Date: 20110629
  Transmission Date: 20111222
  Serious: No
  Sender: FDA-Public Use
  Company Number: US-B.I. PHARMACEUTICALS,INC./RIDGEFIELD-2011-BP-15025PF

PATIENT

DRUGS (26)
  1. MAXZIDE [Concomitant]
  2. LEVOTHYROXINE SODIUM [Concomitant]
     Dosage: 100 MCG
  3. ZOLPIDEM [Concomitant]
     Dosage: 2.5 MG
  4. CALCIUM W/D [Concomitant]
     Dosage: 1800 MG
  5. LACTAID [Concomitant]
  6. OMEPRAZOLE [Concomitant]
     Dosage: 40 MG
  7. POTASSIUM [Concomitant]
     Dosage: 198 MG
  8. ZINC [Concomitant]
     Dosage: 25 MG
  9. GINKGO BIOLOBA [Concomitant]
     Dosage: 60 MG
  10. FISH OIL [Concomitant]
     Dosage: 1000 MG
  11. MULRIVITAMIN/MINERALS [Concomitant]
  12. SELENIUM [Concomitant]
     Dosage: 200 MG
  13. SPIRIVA [Suspect]
     Indication: DYSPNOEA
     Dosage: 18 MCG
  14. SIMVASTATIN [Concomitant]
     Dosage: 40 MG
  15. CULTURELLE PROBIOTIC [Concomitant]
  16. ASCORBIC ACID [Concomitant]
     Dosage: 500 MG
  17. LUTEIN [Concomitant]
     Dosage: 20 MG
  18. MAGNESIUM [Concomitant]
     Dosage: 800 MG
  19. PROPRANOLOL [Concomitant]
     Dosage: 20 MG
  20. VITAMIN D [Concomitant]
     Dosage: 2000 MG
  21. VITAMIN E [Concomitant]
     Dosage: 400 U
  22. VITAMIN B COMPLEX CAP [Concomitant]
  23. SERTRALINE HYDROCHLORIDE [Concomitant]
     Dosage: 25 MG
  24. VITAMIN B-12 [Concomitant]
  25. ASPIRIN [Concomitant]
     Dosage: 81 MG
  26. CREON [Concomitant]

REACTIONS (3)
  - DRY MOUTH [None]
  - DYSPHONIA [None]
  - PHARYNGEAL OEDEMA [None]
